FAERS Safety Report 8009482-X (Version None)
Quarter: 2011Q4

REPORT INFORMATION
  Report Type: 
  Country: None (occurrence: None)
  Receive Date: 20111227
  Receipt Date: 20111213
  Transmission Date: 20120403
  Serious: Yes (Death, Life-Threatening, Hospitalization, Other)
  Sender: FDA-Public Use
  Company Number: US-ACTELION-A-US2011-56844

PATIENT

DRUGS (19)
  1. ARAVA [Concomitant]
  2. POTASSIUM CHLORIDE [Concomitant]
  3. PREDNISONE TAB [Concomitant]
  4. EPOPROSTENOL SODIUM [Suspect]
     Indication: PULMONARY ARTERIAL HYPERTENSION
     Dosage: 49 NG/KG, PER MIN
     Route: 042
     Dates: start: 20100901, end: 20111108
  5. SPIRONOLACTONE [Concomitant]
     Dosage: UNK
     Dates: start: 20100901
  6. LYRICA [Concomitant]
  7. NEXIUM [Concomitant]
  8. ADCIRCA [Concomitant]
  9. DIGOXIN [Concomitant]
  10. LASIX [Concomitant]
  11. CYANOCOBALAMIN [Concomitant]
  12. ZOLOFT [Concomitant]
  13. IRON [Concomitant]
  14. COUMADIN [Concomitant]
  15. PLAQUENIL [Concomitant]
  16. AMBRISENTAN [Concomitant]
  17. CURASOL [Concomitant]
  18. CEFTIN [Concomitant]
  19. IODOSORB [Concomitant]

REACTIONS (41)
  - HAEMODIALYSIS [None]
  - PCO2 INCREASED [None]
  - CONVULSION [None]
  - PYREXIA [None]
  - LUNG TRANSPLANT [None]
  - VENOUS THROMBOSIS [None]
  - ANAEMIA [None]
  - CHOLESTASIS [None]
  - PACKED RED BLOOD CELL TRANSFUSION [None]
  - HYPERBILIRUBINAEMIA [None]
  - LAPAROSCOPY [None]
  - ATRIAL FIBRILLATION [None]
  - HYPERKALAEMIA [None]
  - HYPERCALCAEMIA [None]
  - EXTRACORPOREAL MEMBRANE OXYGENATION [None]
  - RESUSCITATION [None]
  - PULMONARY ARTERIAL HYPERTENSION [None]
  - PULSELESS ELECTRICAL ACTIVITY [None]
  - FUNGAL TEST POSITIVE [None]
  - TRACHEOSTOMY [None]
  - MECHANICAL VENTILATION [None]
  - ENCEPHALOPATHY [None]
  - ALTERNARIA INFECTION [None]
  - RENAL FAILURE ACUTE [None]
  - SEPSIS [None]
  - HYPOTENSION [None]
  - METABOLIC ACIDOSIS [None]
  - HYPERNATRAEMIA [None]
  - ABDOMINAL EXPLORATION [None]
  - PANCYTOPENIA [None]
  - PNEUMOPERITONEUM [None]
  - DUODENAL PERFORATION [None]
  - POST PROCEDURAL HAEMORRHAGE [None]
  - LEUKOCYTOSIS [None]
  - HAEMATOCHEZIA [None]
  - MULTI-ORGAN FAILURE [None]
  - CHRONIC RESPIRATORY FAILURE [None]
  - PURULENT DISCHARGE [None]
  - SPLENOMEGALY [None]
  - COAGULOPATHY [None]
  - OXYGEN SATURATION DECREASED [None]
